FAERS Safety Report 10995105 (Version 1)
Quarter: 2015Q2

REPORT INFORMATION
  Report Type: Spontaneous
  Country: JP (occurrence: JP)
  Receive Date: 20150407
  Receipt Date: 20150407
  Transmission Date: 20150821
  Serious: Yes (Other)
  Sender: FDA-Public Use
  Company Number: JP-PFIZER INC-2015114035

PATIENT
  Age: 70 Year
  Sex: Male

DRUGS (3)
  1. SUTENT [Suspect]
     Active Substance: SUNITINIB MALATE
     Indication: RENAL CANCER
     Dosage: 50 MG, DAILY
     Route: 048
     Dates: start: 20131216
  2. SUTENT [Suspect]
     Active Substance: SUNITINIB MALATE
     Dosage: 37.5 MG DAILY  ON A REGIMEN OF 2-WEEK TREATMENT AND 1-WEEK INTERRUPTION
     Dates: start: 20140120, end: 20150302
  3. RANMARK [Suspect]
     Active Substance: DENOSUMAB
     Dosage: UNK
     Dates: start: 20131212

REACTIONS (8)
  - Ascites [Recovering/Resolving]
  - Back pain [Unknown]
  - Hypertension [Unknown]
  - Proteinuria [Recovering/Resolving]
  - Hypoproteinaemia [Unknown]
  - Chronic kidney disease [Unknown]
  - Oedema peripheral [Recovering/Resolving]
  - Pleural effusion [Recovering/Resolving]

NARRATIVE: CASE EVENT DATE: 20141110
